FAERS Safety Report 8190950-5 (Version None)
Quarter: 2012Q1

REPORT INFORMATION
  Report Type: 
  Country: None (occurrence: None)
  Receive Date: 20120307
  Receipt Date: 20120224
  Transmission Date: 20120608
  Serious: Yes (Other)
  Sender: FDA-Public Use
  Company Number: IT-ACTELION-A-CH2010-35159

PATIENT
  Sex: Female
  Weight: 58 kg

DRUGS (3)
  1. TRACLEER [Suspect]
     Dosage: 62.5 MG, BID
     Route: 048
     Dates: start: 20100208, end: 20100307
  2. TRACLEER [Suspect]
     Indication: SKIN ULCER
     Dosage: 125 MG, BID
     Route: 048
     Dates: start: 20100308, end: 20100316
  3. ENDOPROST [Concomitant]
     Indication: SYSTEMIC SCLEROSIS
     Dosage: UNK
     Dates: start: 20070301, end: 20100312

REACTIONS (2)
  - PREGNANCY [None]
  - ABORTION [None]
